FAERS Safety Report 7829892-0 (Version None)
Quarter: 2011Q4

REPORT INFORMATION
  Report Type: 
  Country: None (occurrence: None)
  Receive Date: 20111021
  Receipt Date: 20111010
  Transmission Date: 20120403
  Serious: Yes (Other)
  Sender: FDA-Public Use
  Company Number: AU-JNJFOC-20110701817

PATIENT
  Sex: Female

DRUGS (3)
  1. REMICADE [Suspect]
     Indication: CROHN'S DISEASE
     Route: 042
     Dates: start: 20101201
  2. REMICADE [Suspect]
     Route: 042
     Dates: start: 20110630
  3. REMICADE [Suspect]
     Route: 042
     Dates: start: 20070101

REACTIONS (3)
  - MATERNAL EXPOSURE DURING PREGNANCY [None]
  - CAESAREAN SECTION [None]
  - POSTOPERATIVE WOUND COMPLICATION [None]
